FAERS Safety Report 13360586 (Version 1)
Quarter: 2017Q1

REPORT INFORMATION
  Report Type: Spontaneous
  Country: FR (occurrence: FR)
  Receive Date: 20170322
  Receipt Date: 20170322
  Transmission Date: 20170429
  Serious: Yes (Death, Life-Threatening, Other)
  Sender: FDA-Public Use
  Company Number: FR-JNJFOC-20170321389

PATIENT

DRUGS (1)
  1. TRAMADOL HYDROCHLORIDE. [Suspect]
     Active Substance: TRAMADOL HYDROCHLORIDE
     Indication: PRODUCT USED FOR UNKNOWN INDICATION
     Route: 065

REACTIONS (10)
  - Death [Fatal]
  - Disseminated intravascular coagulation [Unknown]
  - Serotonin syndrome [Unknown]
  - Cardiac arrest [Unknown]
  - Altered state of consciousness [Unknown]
  - Seizure [Unknown]
  - Circulatory collapse [Unknown]
  - Pneumonia aspiration [Unknown]
  - Poisoning [Unknown]
  - Adverse event [Unknown]
